FAERS Safety Report 5704976-1 (Version None)
Quarter: 2008Q2

REPORT INFORMATION
  Report Type: 
  Country: None (occurrence: None)
  Receive Date: 20080414
  Receipt Date: 20080319
  Transmission Date: 20081010
  Serious: No
  Sender: FDA-Public Use
  Company Number: US-BOEHRINGER INGELHEIM GMBH, GERMANY-2008-BP-04552BP

PATIENT
  Sex: Female

DRUGS (11)
  1. SPIRIVA [Suspect]
     Indication: CHRONIC OBSTRUCTIVE PULMONARY DISEASE
     Dates: start: 20070101
  2. SPIRIVA [Suspect]
     Indication: BRONCHITIS CHRONIC
  3. ATROVENT HFA [Concomitant]
     Indication: DYSPNOEA
  4. COMBIVENT [Concomitant]
     Indication: DYSPNOEA
  5. FORADIL [Concomitant]
     Indication: DYSPNOEA
  6. ASPIRIN [Concomitant]
  7. LASIX [Concomitant]
  8. RELAFEN [Concomitant]
  9. TOPROL-XL [Concomitant]
  10. LISINOPRIL [Concomitant]
  11. TRICOR [Concomitant]

REACTIONS (1)
  - COUGH [None]
